FAERS Safety Report 9466293 (Version 2)
Quarter: 2013Q3

REPORT INFORMATION
  Report Type: Spontaneous
  Country: SE (occurrence: SE)
  Receive Date: 20130820
  Receipt Date: 20130916
  Transmission Date: 20140515
  Serious: Yes (Other)
  Sender: FDA-Public Use
  Company Number: SE-TEVA-425476ISR

PATIENT
  Age: 68 Year
  Sex: Male

DRUGS (14)
  1. AMANTADINE [Suspect]
     Indication: PARKINSONISM
     Dosage: 100 MILLIGRAM DAILY;
     Dates: start: 20130702, end: 20130806
  2. SIFROL [Concomitant]
     Indication: PARKINSONISM
     Dosage: 1.05 MILLIGRAM DAILY;
     Route: 048
     Dates: start: 20130702, end: 20130806
  3. ARANESP [Concomitant]
  4. BEHEPAN [Concomitant]
  5. CALCICHEW D3 [Concomitant]
  6. ETALPHA [Concomitant]
  7. FOLACIN [Concomitant]
  8. HYDROKORTISON [Concomitant]
  9. IMUREL [Concomitant]
  10. LEVAXIN [Concomitant]
  11. MYCOSTATIN [Concomitant]
  12. NEXIUM [Concomitant]
  13. SIMVASTATIN [Concomitant]
  14. TROMBYL [Concomitant]

REACTIONS (4)
  - Poisoning [Recovered/Resolved]
  - Extrapyramidal disorder [Recovered/Resolved]
  - Orthostatic hypotension [Recovered/Resolved]
  - Bradycardia [Recovered/Resolved]
